FAERS Safety Report 8288658-0 (Version None)
Quarter: 2012Q2

REPORT INFORMATION
  Report Type: 
  Country: None (occurrence: None)
  Receive Date: 20120416
  Receipt Date: 20120411
  Transmission Date: 20120825
  Serious: Yes (Hospitalization)
  Sender: FDA-Public Use
  Company Number: US-MYLANLABS-2012S1007466

PATIENT
  Age: 58 Year
  Sex: Male
  Weight: 92.53 kg

DRUGS (8)
  1. JANUMET [Concomitant]
     Route: 048
  2. LOVAZA [Concomitant]
     Route: 048
  3. NIACIN [Concomitant]
     Route: 048
  4. ASPIRIN [Concomitant]
     Route: 048
  5. PRISTIQ [Concomitant]
     Route: 048
  6. MIDODRINE HYDROCHLORIDE [Suspect]
     Indication: HYPOTENSION
     Route: 048
     Dates: start: 20120401, end: 20120401
  7. WARFARIN SODIUM [Concomitant]
     Route: 048
  8. CHOLESTEROL MEDICATION [Concomitant]
     Indication: BLOOD CHOLESTEROL
     Route: 048

REACTIONS (5)
  - HYPERTENSION [None]
  - DIZZINESS [None]
  - CHEST PAIN [None]
  - FLUSHING [None]
  - FEELING HOT [None]
